FAERS Safety Report 14715342 (Version 1)
Quarter: 2018Q2

REPORT INFORMATION
  Report Type: Report from Study
  Country: BR (occurrence: BR)
  Receive Date: 20180404
  Receipt Date: 20180404
  Transmission Date: 20180711
  Serious: Yes (Hospitalization, Other)
  Sender: FDA-Public Use
  Company Number: BR-JNJFOC-20170519440

PATIENT
  Age: 42 Year
  Sex: Female

DRUGS (8)
  1. INVEGA SUSTENNA [Suspect]
     Active Substance: PALIPERIDONE PALMITATE
     Indication: SCHIZOPHRENIA
     Dosage: DAY 8 DOSE
     Route: 030
     Dates: start: 20170121
  2. DULOXETINE. [Concomitant]
     Active Substance: DULOXETINE
     Indication: PRODUCT USED FOR UNKNOWN INDICATION
     Route: 065
  3. INVEGA SUSTENNA [Suspect]
     Active Substance: PALIPERIDONE PALMITATE
     Indication: SCHIZOPHRENIA
     Dosage: DAY 1 DOSE
     Route: 030
     Dates: start: 20170114
  4. INVEGA SUSTENNA [Suspect]
     Active Substance: PALIPERIDONE PALMITATE
     Indication: SCHIZOPHRENIA
     Route: 030
  5. INVEGA SUSTENNA [Suspect]
     Active Substance: PALIPERIDONE PALMITATE
     Indication: SCHIZOPHRENIA
     Route: 030
  6. CLONAZEPAN [Concomitant]
     Active Substance: CLONAZEPAM
     Indication: PRODUCT USED FOR UNKNOWN INDICATION
     Route: 065
  7. QUETIAPINE. [Concomitant]
     Active Substance: QUETIAPINE
     Indication: PRODUCT USED FOR UNKNOWN INDICATION
     Route: 065
  8. MIDAZOLAM [Interacting]
     Active Substance: MIDAZOLAM HYDROCHLORIDE
     Indication: ANAESTHESIA
     Route: 065
     Dates: start: 20170405

REACTIONS (18)
  - Drug ineffective [Unknown]
  - Drug interaction [Unknown]
  - Abscess [Unknown]
  - Arrhythmia [Unknown]
  - Uterine leiomyoma [Unknown]
  - Feeling abnormal [Unknown]
  - Head discomfort [Unknown]
  - Blood glucose increased [Unknown]
  - Sedation [Unknown]
  - Anaesthetic complication [Unknown]
  - Disturbance in attention [Unknown]
  - Depression [Unknown]
  - Persecutory delusion [Not Recovered/Not Resolved]
  - Hypertension [Unknown]
  - Hallucination [Not Recovered/Not Resolved]
  - Weight increased [Unknown]
  - Alopecia [Unknown]
  - Memory impairment [Unknown]

NARRATIVE: CASE EVENT DATE: 2017
